FAERS Safety Report 6887563-1 (Version None)
Quarter: 2010Q3

REPORT INFORMATION
  Report Type: 
  Country: None (occurrence: None)
  Receive Date: 20100730
  Receipt Date: 20100720
  Transmission Date: 20110219
  Serious: Yes (Other)
  Sender: FDA-Public Use
  Company Number: US-PFIZER INC-2010063180

PATIENT
  Sex: Female
  Weight: 90.718 kg

DRUGS (11)
  1. LYRICA [Suspect]
     Indication: FIBROMYALGIA
     Dosage: 50 MG, DAILY
     Route: 048
     Dates: start: 20080101
  2. LYRICA [Suspect]
     Indication: OSTEOARTHRITIS
     Dosage: 50 MG, 2X/DAY
     Route: 048
     Dates: start: 20100406, end: 20100501
  3. ANASTROZOLE [Concomitant]
     Dosage: UNK
  4. TRICOR [Concomitant]
     Dosage: UNK
  5. BENICAR [Concomitant]
     Dosage: UNK
  6. PLAVIX [Concomitant]
     Dosage: UNK
  7. SYNTHROID [Concomitant]
     Indication: HYPOTHYROIDISM
     Dosage: UNK
  8. FLEXERIL [Concomitant]
     Indication: PAIN
     Dosage: UNK
  9. VICODIN [Concomitant]
     Indication: PAIN
     Dosage: UNK
  10. VALIUM [Concomitant]
  11. HYDROCODONE BITARTRATE [Concomitant]
     Dosage: FREQUENCY: AS NEEDED,

REACTIONS (4)
  - CONFUSIONAL STATE [None]
  - DIZZINESS [None]
  - DYSARTHRIA [None]
  - FALL [None]
